FAERS Safety Report 8171717-0 (Version None)
Quarter: 2012Q1

REPORT INFORMATION
  Report Type: 
  Country: None (occurrence: None)
  Receive Date: 20120228
  Receipt Date: 20120216
  Transmission Date: 20120608
  Serious: Yes (Other)
  Sender: FDA-Public Use
  Company Number: CHPA2012US001879

PATIENT
  Age: 17 Year
  Sex: Male

DRUGS (1)
  1. GAS-X [Suspect]
     Dosage: 2 DF, QID
     Route: 048
     Dates: start: 20120201, end: 20120201

REACTIONS (8)
  - FAECES HARD [None]
  - INCORRECT DOSE ADMINISTERED [None]
  - CONFUSIONAL STATE [None]
  - OVERDOSE [None]
  - FLATULENCE [None]
  - GAIT DISTURBANCE [None]
  - VOMITING [None]
  - DISORIENTATION [None]
